FAERS Safety Report 5889050-6 (Version None)
Quarter: 2008Q3

REPORT INFORMATION
  Report Type: 
  Country: None (occurrence: None)
  Receive Date: 20080919
  Receipt Date: 20070915
  Transmission Date: 20090109
  Serious: No
  Sender: FDA-Public Use
  Company Number: US-KINGPHARMUSA00001-K200701201

PATIENT

DRUGS (1)
  1. SONATA [Suspect]
     Indication: INITIAL INSOMNIA
     Dosage: 10 MG, UNK
     Route: 048

REACTIONS (6)
  - DIZZINESS [None]
  - FEELING ABNORMAL [None]
  - NAUSEA [None]
  - NERVOUSNESS [None]
  - NOCTURIA [None]
  - TREMOR [None]
